FAERS Safety Report 7279494-2 (Version None)
Quarter: 2011Q1

REPORT INFORMATION
  Report Type: 
  Country: None (occurrence: None)
  Receive Date: 20110208
  Receipt Date: 20110124
  Transmission Date: 20110831
  Serious: No
  Sender: FDA-Public Use
  Company Number: US-BIOGENIDEC-2011BI003661

PATIENT
  Age: 62 Year
  Sex: Female

DRUGS (1)
  1. TYSABRI [Suspect]
     Indication: MULTIPLE SCLEROSIS
     Route: 042
     Dates: start: 20091118

REACTIONS (7)
  - SINUSITIS [None]
  - DRY MOUTH [None]
  - NAUSEA [None]
  - TENDON DISORDER [None]
  - GENERAL SYMPTOM [None]
  - LIGAMENT DISORDER [None]
  - FATIGUE [None]
